FAERS Safety Report 8271368-3 (Version None)
Quarter: 2012Q2

REPORT INFORMATION
  Report Type: 
  Country: None (occurrence: None)
  Receive Date: 20120410
  Receipt Date: 20120125
  Transmission Date: 20120825
  Serious: No
  Sender: FDA-Public Use
  Company Number: US-NOVEN-12US003996

PATIENT
  Sex: Female

DRUGS (17)
  1. LOSARTAN POTASSIUM [Concomitant]
     Indication: HYPERTENSION
     Dosage: 50 MG, UNK
     Route: 048
  2. IMDUR [Concomitant]
     Indication: CARDIAC DISORDER
     Dosage: 60 MG, UNK
     Route: 048
  3. MORPHINE [Concomitant]
     Indication: PAIN
     Dosage: 15 MG, TID
     Route: 048
  4. SPIRONOLACTONE [Concomitant]
     Indication: HYPERTENSION
     Dosage: 25 MG, UNK
     Route: 048
  5. KLOR-CON [Concomitant]
     Dosage: ONE DAILY
     Route: 048
  6. NORVASC [Concomitant]
     Indication: CARDIAC DISORDER
     Dosage: 50 MG, UNK
     Route: 048
  7. CODEINE [Concomitant]
     Indication: PAIN
     Dosage: 30 MG, UNK
     Route: 048
  8. METFORMIN HCL [Concomitant]
     Indication: DIABETES MELLITUS
     Dosage: 500 MG, UNK
     Route: 048
  9. ADVAIR DISKUS 100/50 [Concomitant]
     Indication: ASTHMA
     Dosage: 250 MG, UNK
     Route: 048
  10. LASIX [Concomitant]
     Indication: CARDIAC DISORDER
     Dosage: 40 MG, UNK
     Route: 048
  11. CO Q 10 [Concomitant]
     Indication: SUPPLEMENTATION THERAPY
     Dosage: 100 MG, UNK
     Route: 048
  12. FENTANYL CITRATE [Suspect]
     Indication: PAIN
     Dosage: 25 UG/HR Q 72 HOURS
     Route: 062
     Dates: start: 20111201
  13. ASPIRIN [Concomitant]
     Indication: CARDIAC DISORDER
     Dosage: 81 MG, UNK
     Route: 048
  14. PLAVIX [Concomitant]
     Indication: CARDIAC DISORDER
     Dosage: 75 MG, UNK
     Route: 048
  15. ACTOS [Concomitant]
     Indication: DIABETES MELLITUS
     Dosage: 15 MG, UNK
     Route: 048
  16. MUCINEX [Concomitant]
     Dosage: TWO DAILY
     Route: 048
  17. TOPROL-XL [Concomitant]
     Indication: CARDIAC DISORDER
     Dosage: 50 MG, BID
     Route: 048

REACTIONS (4)
  - SPEECH DISORDER [None]
  - NAUSEA [None]
  - DYSPHAGIA [None]
  - PHARYNGEAL OEDEMA [None]
